FAERS Safety Report 8228444-0 (Version None)
Quarter: 2012Q1

REPORT INFORMATION
  Report Type: 
  Country: None (occurrence: None)
  Receive Date: 20120322
  Receipt Date: 20110627
  Transmission Date: 20120608
  Serious: Yes (Other)
  Sender: FDA-Public Use
  Company Number: US-BRISTOL-MYERS SQUIBB COMPANY-15859275

PATIENT
  Sex: Male

DRUGS (1)
  1. ERBITUX [Suspect]
     Dates: start: 20090901, end: 20090901

REACTIONS (1)
  - CARDIO-RESPIRATORY ARREST [None]
